FAERS Safety Report 5373248-X (Version None)
Quarter: 2007Q2

REPORT INFORMATION
  Report Type: 
  Country: None (occurrence: None)
  Receive Date: 20070628
  Receipt Date: 20070621
  Transmission Date: 20071010
  Serious: Yes (Other)
  Sender: FDA-Public Use
  Company Number: PHEH2007US04680

PATIENT
  Age: 50 Year
  Sex: Female

DRUGS (3)
  1. ZELNORM [Suspect]
     Indication: CONSTIPATION
     Dosage: 6 MG, BID
     Dates: start: 20020101, end: 20070405
  2. PREMARIN [Concomitant]
  3. PREVACID [Concomitant]
     Indication: GASTROOESOPHAGEAL REFLUX DISEASE

REACTIONS (6)
  - CHEST PAIN [None]
  - DYSPNOEA [None]
  - HAEMORRHOIDS [None]
  - NAUSEA [None]
  - PRODUCTIVE COUGH [None]
  - RECTAL HAEMORRHAGE [None]
